FAERS Safety Report 8951624 (Version 1)
Quarter: 2012Q4

REPORT INFORMATION
  Report Type: 
  Country: GB (occurrence: GB)
  Receive Date: 20121204
  Receipt Date: 20121204
  Transmission Date: 20130627
  Serious: Yes (Disabling)
  Sender: FDA-Public Use
  Company Number: GB-ROCHE-1163287

PATIENT
  Age: 22 Year
  Sex: Female
  Weight: 61.23 kg

DRUGS (1)
  1. ROACCUTANE [Suspect]
     Indication: ACNE
     Route: 048
     Dates: start: 20090401, end: 20091201

REACTIONS (4)
  - Intentional self-injury [Unknown]
  - Depression [Unknown]
  - Skin sensitisation [Unknown]
  - Suicidal ideation [Unknown]
